FAERS Safety Report 22166898 (Version 1)
Quarter: 2023Q2

REPORT INFORMATION
  Report Type: Spontaneous
  Country: CA (occurrence: CA)
  Receive Date: 20230403
  Receipt Date: 20230403
  Transmission Date: 20230721
  Serious: Yes (Other)
  Sender: FDA-Public Use
  Company Number: CA-ORGANON-O2304CAN000068

PATIENT
  Age: 74 Year
  Sex: Female
  Weight: 51 kg

DRUGS (1)
  1. FOSAMAX [Suspect]
     Active Substance: ALENDRONATE SODIUM
     Indication: Osteoporosis
     Dosage: 70 MILLIGRAM, 1 EVERY 1 WEEKS
     Route: 048

REACTIONS (2)
  - Dyspepsia [Recovered/Resolved]
  - Product substitution issue [Recovered/Resolved]
